FAERS Safety Report 20369499 (Version 1)
Quarter: 2022Q1

REPORT INFORMATION
  Report Type: Spontaneous
  Country: US (occurrence: None)
  Receive Date: 20220121
  Receipt Date: 20220121
  Transmission Date: 20220423
  Serious: Yes (Other)
  Sender: FDA-Public Use
  Company Number: None

PATIENT
  Age: 21 Year
  Sex: Female
  Weight: 45 kg

DRUGS (2)
  1. ACCUTANE [Suspect]
     Active Substance: ISOTRETINOIN
     Indication: Acne
     Dates: start: 20211206, end: 20220114
  2. ACCUTANE [Concomitant]
     Active Substance: ISOTRETINOIN
     Dates: start: 20211206, end: 20220114

REACTIONS (3)
  - Depressed mood [None]
  - Psychiatric symptom [None]
  - Depression [None]

NARRATIVE: CASE EVENT DATE: 20220114
